FAERS Safety Report 7643877-9 (Version None)
Quarter: 2011Q3

REPORT INFORMATION
  Report Type: 
  Country: None (occurrence: None)
  Receive Date: 20110729
  Receipt Date: 20101118
  Transmission Date: 20111222
  Serious: No
  Sender: FDA-Public Use
  Company Number: US-GLAXOSMITHKLINE-A0893242A

PATIENT
  Sex: Female

DRUGS (2)
  1. IMITREX [Suspect]
     Indication: MIGRAINE
     Route: 065
  2. IMITREX [Suspect]

REACTIONS (3)
  - FEELING ABNORMAL [None]
  - DRUG INEFFECTIVE [None]
  - HEADACHE [None]
